FAERS Safety Report 14821807 (Version 1)
Quarter: 2018Q2

REPORT INFORMATION
  Report Type: Spontaneous
  Country: JP (occurrence: JP)
  Receive Date: 20180427
  Receipt Date: 20180427
  Transmission Date: 20180711
  Serious: Yes (Other)
  Sender: FDA-Public Use
  Company Number: JP-BAYER-2018-076635

PATIENT
  Sex: Female

DRUGS (2)
  1. NEXAVAR [Suspect]
     Active Substance: SORAFENIB
     Dosage: DAILY DOSE 400 MG
     Route: 048
     Dates: start: 20170803
  2. PLAVIX [Suspect]
     Active Substance: CLOPIDOGREL BISULFATE

REACTIONS (3)
  - Diverticulum intestinal haemorrhagic [Not Recovered/Not Resolved]
  - Epistaxis [Recovered/Resolved]
  - Rectal ulcer [Recovering/Resolving]

NARRATIVE: CASE EVENT DATE: 20171201
